FAERS Safety Report 9496316 (Version 2)
Quarter: 2013Q3

REPORT INFORMATION
  Report Type: Spontaneous
  Country: BR (occurrence: BR)
  Receive Date: 20130904
  Receipt Date: 20130904
  Transmission Date: 20140515
  Serious: Yes (Other)
  Sender: FDA-Public Use
  Company Number: BR-GENZYME-THYM-1003938

PATIENT
  Age: 33 Year
  Sex: Male
  Weight: 68.4 kg

DRUGS (1)
  1. THYMOGLOBULINE [Suspect]
     Indication: RENAL TRANSPLANT
     Dosage: 25 MG, UNK
     Route: 042
     Dates: start: 20130718, end: 20130718

REACTIONS (4)
  - Limb discomfort [Recovered/Resolved]
  - Tremor [Recovered/Resolved]
  - Tachycardia [Recovered/Resolved]
  - Dyspnoea [Recovered/Resolved]
